FAERS Safety Report 6771468-0 (Version None)
Quarter: 2010Q2

REPORT INFORMATION
  Report Type: 
  Country: None (occurrence: None)
  Receive Date: 20100616
  Receipt Date: 20100609
  Transmission Date: 20101027
  Serious: Yes (Death)
  Sender: FDA-Public Use
  Company Number: JP-ROCHE-632607

PATIENT
  Sex: Female
  Weight: 65.5 kg

DRUGS (22)
  1. TOCILIZUMAB [Suspect]
     Indication: RHEUMATOID ARTHRITIS
     Route: 041
     Dates: start: 20081203, end: 20081203
  2. TOCILIZUMAB [Suspect]
     Route: 041
     Dates: start: 20081224, end: 20081224
  3. TOCILIZUMAB [Suspect]
     Route: 041
     Dates: start: 20090121, end: 20090121
  4. TOCILIZUMAB [Suspect]
     Route: 041
     Dates: start: 20090218, end: 20090218
  5. TOCILIZUMAB [Suspect]
     Route: 041
     Dates: start: 20090319, end: 20090319
  6. TOCILIZUMAB [Suspect]
     Route: 041
     Dates: start: 20090416, end: 20090416
  7. BASEN [Suspect]
     Indication: DIABETES MELLITUS
     Route: 048
     Dates: start: 20090319
  8. VOLTAREN [Concomitant]
     Indication: RHEUMATOID ARTHRITIS
     Route: 048
  9. PARIET [Concomitant]
     Route: 048
  10. PYDOXAL [Concomitant]
     Route: 048
  11. FERROMIA [Concomitant]
     Indication: ANAEMIA
     Dosage: FORM: PERORAL AGENT
     Route: 048
  12. CYTOTEC [Concomitant]
     Indication: RHEUMATOID ARTHRITIS
     Dosage: DOSE REPORTED AS 300 MCG.
     Route: 048
     Dates: start: 20081203
  13. VOLTAREN [Concomitant]
     Dosage: FORM: RECTAL SUPPOSITORY
     Route: 054
  14. SELBEX [Concomitant]
     Route: 048
  15. GASTROM [Concomitant]
     Indication: GASTRITIS
     Route: 048
  16. MAGNESIUM OXIDE [Concomitant]
     Indication: GASTRITIS
     Route: 048
  17. NIFEDIPINE [Concomitant]
     Dosage: REPORTED AS NIRENA L
     Route: 048
  18. PREDNISOLONE [Concomitant]
     Dosage: FORM: PERORAL AGENT
     Route: 048
     Dates: start: 20081204, end: 20081217
  19. PREDNISOLONE [Concomitant]
     Route: 048
     Dates: start: 20081218, end: 20090120
  20. PREDNISOLONE [Concomitant]
     Route: 048
     Dates: start: 20090121, end: 20090318
  21. PREDNISOLONE [Concomitant]
     Route: 048
     Dates: start: 20090319
  22. VOLTAREN [Concomitant]
     Route: 048

REACTIONS (6)
  - BRONCHOPNEUMONIA [None]
  - C-REACTIVE PROTEIN INCREASED [None]
  - CARDIAC FAILURE ACUTE [None]
  - ORGANISING PNEUMONIA [None]
  - PULMONARY OEDEMA [None]
  - RESPIRATORY FAILURE [None]
